FAERS Safety Report 25457906 (Version 1)
Quarter: 2025Q2

REPORT INFORMATION
  Report Type: Spontaneous
  Country: US (occurrence: US)
  Receive Date: 20250620
  Receipt Date: 20250620
  Transmission Date: 20250717
  Serious: Yes (Other)
  Sender: BRISTOL-MYERS SQUIBB COMPANY
  Company Number: US-BRISTOL-MYERS SQUIBB COMPANY-2025-087224

PATIENT
  Age: 75 Year
  Sex: Female

DRUGS (1)
  1. LENALIDOMIDE [Suspect]
     Active Substance: LENALIDOMIDE
     Indication: Osteoarthritis
     Dosage: TAKE 1 CAPSULE BY MOUTH EVERY DAY FOR 21 DAYS , 7 DAYS OFF
     Route: 048

REACTIONS (4)
  - Platelet count decreased [Recovered/Resolved]
  - Clavicle fracture [Recovered/Resolved]
  - Injury [Recovered/Resolved]
  - Off label use [Unknown]
